FAERS Safety Report 7970313-5 (Version None)
Quarter: 2011Q4

REPORT INFORMATION
  Report Type: 
  Country: None (occurrence: None)
  Receive Date: 20111122
  Receipt Date: 20110725
  Transmission Date: 20120403
  Serious: Yes (Other)
  Sender: FDA-Public Use
  Company Number: PHHY2011US48454

PATIENT
  Age: 47 Year
  Sex: Male

DRUGS (8)
  1. POLYTHYLENE GLYCOL 3350 (MACROGOL 3350) [Concomitant]
  2. GILENYA [Suspect]
     Indication: MULTIPLE SCLEROSIS
     Dosage: 0.5 MG, DAILY, ORAL
     Route: 048
     Dates: start: 20110317
  3. GILENYA [Suspect]
     Indication: MULTIPLE SCLEROSIS
     Dosage: 0.5 MG, DAILY, ORAL
     Route: 048
     Dates: start: 20110617
  4. TIZANIDINE (TIZANIDINE) , 4 MG [Concomitant]
  5. CIALIS ^GLAXOSMITHKLINE^ (TADALAFIL), 5 MG [Concomitant]
  6. NSAID'S (NO INGREDIENTS/SUBSTANCE) [Concomitant]
  7. LIPITOR [Concomitant]
  8. MULTI-VITAMINS (CALCIUM PANTOTHENATE, FOLIC ACID, VITAMINS NOS) [Concomitant]

REACTIONS (3)
  - ASPARTATE AMINOTRANSFERASE INCREASED [None]
  - LIVER FUNCTION TEST ABNORMAL [None]
  - ALANINE AMINOTRANSFERASE INCREASED [None]
